FAERS Safety Report 21396605 (Version 1)
Quarter: 2022Q3

REPORT INFORMATION
  Report Type: Spontaneous
  Country: US (occurrence: None)
  Receive Date: 20220929
  Receipt Date: 20220929
  Transmission Date: 20221026
  Serious: Yes (Hospitalization)
  Sender: FDA-Public Use
  Company Number: None

PATIENT
  Age: 75 Year
  Sex: Male

DRUGS (2)
  1. LEVOFLOXACIN [Suspect]
     Active Substance: LEVOFLOXACIN
     Indication: Infection
     Dosage: FREQUENCY : DAILY;?
     Route: 048
  2. FLUTICASONE [Suspect]
     Active Substance: FLUTICASONE
     Indication: Seasonal allergy
     Dosage: FREQUENCY : TWICE A DAY;?
     Route: 045
     Dates: start: 20220701, end: 20220715

REACTIONS (4)
  - Swollen tongue [None]
  - Pharyngeal swelling [None]
  - Drooling [None]
  - Candida infection [None]

NARRATIVE: CASE EVENT DATE: 20220719
